FAERS Safety Report 6876728-0 (Version None)
Quarter: 2010Q3

REPORT INFORMATION
  Report Type: 
  Country: None (occurrence: None)
  Receive Date: 20100727
  Receipt Date: 20100716
  Transmission Date: 20110219
  Serious: Yes (Death, Hospitalization)
  Sender: FDA-Public Use
  Company Number: JP-ROCHE-640078

PATIENT
  Sex: Female

DRUGS (25)
  1. ACTEMRA [Suspect]
     Indication: RHEUMATOID ARTHRITIS
     Route: 041
     Dates: start: 20080704, end: 20080704
  2. ACTEMRA [Suspect]
     Route: 041
     Dates: start: 20080801, end: 20080801
  3. ACTEMRA [Suspect]
     Route: 041
     Dates: start: 20080905, end: 20080905
  4. ACTEMRA [Suspect]
     Route: 041
     Dates: start: 20081003, end: 20081003
  5. ACTEMRA [Suspect]
     Route: 041
     Dates: start: 20081031, end: 20081031
  6. ACTEMRA [Suspect]
     Route: 041
     Dates: start: 20081128, end: 20081128
  7. ACTEMRA [Suspect]
     Route: 041
     Dates: start: 20081226, end: 20100618
  8. ISONIAZID [Suspect]
     Route: 048
     Dates: start: 20080530, end: 20081031
  9. METOLATE [Concomitant]
     Route: 048
     Dates: start: 20060325
  10. PREDNISOLONE [Concomitant]
     Dosage: FORM: ORAL FORMULATION NOS
     Route: 048
     Dates: end: 20080801
  11. PREDNISOLONE [Concomitant]
     Route: 048
     Dates: start: 20080802, end: 20081003
  12. PREDNISOLONE [Concomitant]
     Route: 048
     Dates: start: 20081004, end: 20081031
  13. PREDNISOLONE [Concomitant]
     Route: 048
     Dates: start: 20081101, end: 20081128
  14. PREDNISOLONE [Concomitant]
     Route: 048
     Dates: start: 20081129, end: 20081226
  15. LOXONIN [Concomitant]
     Route: 048
     Dates: start: 20060522
  16. SELBEX [Concomitant]
     Route: 048
     Dates: start: 20060623
  17. FOLIAMIN [Concomitant]
     Route: 048
     Dates: start: 20061201
  18. URSO 250 [Concomitant]
     Route: 048
     Dates: start: 20070119
  19. BONALON [Concomitant]
     Route: 048
     Dates: start: 20070119
  20. CANDESARTAN CILEXETIL [Concomitant]
     Route: 048
     Dates: start: 20060721
  21. AMLODIPINE BESYLATE [Concomitant]
     Route: 048
  22. AMLODIPINE BESYLATE [Concomitant]
     Route: 048
     Dates: start: 20060521
  23. ARTIST [Concomitant]
     Route: 048
     Dates: start: 20060531
  24. LASIX [Concomitant]
     Route: 048
     Dates: start: 20060527
  25. ALDACTONE [Concomitant]
     Dosage: FORM:ORAL FORMULATION NOS
     Route: 048
     Dates: start: 20060525

REACTIONS (5)
  - CONJUNCTIVITIS [None]
  - DEATH [None]
  - INFUSION RELATED REACTION [None]
  - LIVER DISORDER [None]
  - TONSILLITIS [None]
